FAERS Safety Report 7651401-X (Version None)
Quarter: 2011Q3

REPORT INFORMATION
  Report Type: 
  Country: None (occurrence: None)
  Receive Date: 20110802
  Receipt Date: 20110722
  Transmission Date: 20111222
  Serious: Yes (Other)
  Sender: FDA-Public Use
  Company Number: PHHY2011FR61247

PATIENT
  Age: 22 Year
  Sex: Male

DRUGS (3)
  1. CLOZAPINE [Suspect]
     Indication: SCHIZOPHRENIA
     Dosage: 250 MG, DAILY
  2. CLOZAPINE [Suspect]
     Indication: DELUSION
  3. CLOZAPINE [Suspect]
     Indication: MENTAL DISORDER
     Dosage: 700 MG, DAILY
     Dates: start: 20080101

REACTIONS (7)
  - VOMITING [None]
  - ABDOMINAL PAIN [None]
  - WITHDRAWAL SYNDROME [None]
  - HYPERHIDROSIS [None]
  - IRRITABILITY [None]
  - HEADACHE [None]
  - INSOMNIA [None]
